FAERS Safety Report 7803200-3 (Version None)
Quarter: 2011Q4

REPORT INFORMATION
  Report Type: 
  Country: None (occurrence: None)
  Receive Date: 20111007
  Receipt Date: 20110928
  Transmission Date: 20120403
  Serious: Yes (Hospitalization)
  Sender: FDA-Public Use
  Company Number: CH-ASTRAZENECA-2011SE58662

PATIENT
  Age: 34 Year
  Sex: Female

DRUGS (21)
  1. SEROQUEL XR [Interacting]
     Route: 048
     Dates: start: 20110401
  2. SEROQUEL XR [Interacting]
     Route: 048
     Dates: start: 20110808, end: 20110818
  3. METHADONE HCL [Interacting]
     Indication: ABNORMAL BEHAVIOUR
     Route: 048
  4. VIREAD [Concomitant]
     Route: 048
  5. SEROQUEL XR [Interacting]
     Route: 048
     Dates: start: 20110501
  6. NORVIR [Interacting]
     Indication: HIV INFECTION
     Route: 048
  7. ATAZANAVIR SULFATE [Interacting]
     Indication: HIV INFECTION
     Route: 048
  8. METHADONE HCL [Interacting]
     Indication: MENTAL DISORDER
     Route: 048
  9. REMERON [Interacting]
     Route: 048
     Dates: start: 20110815
  10. LAMIVUDINE (EPIVIR HBV) [Concomitant]
     Route: 048
  11. XYZAL [Concomitant]
     Route: 048
  12. OXAZEPAM [Interacting]
     Route: 048
     Dates: end: 20110818
  13. AKINETON [Concomitant]
     Route: 048
     Dates: end: 20110725
  14. SEROQUEL XR [Interacting]
     Route: 048
     Dates: start: 20100101
  15. SEROQUEL XR [Interacting]
     Route: 048
     Dates: start: 20110806
  16. SEROQUEL XR [Interacting]
     Route: 048
     Dates: start: 20110807
  17. SEROQUEL XR [Suspect]
     Indication: SCHIZOAFFECTIVE DISORDER
     Route: 048
     Dates: start: 20100801
  18. SEROQUEL XR [Interacting]
     Route: 048
     Dates: start: 20110719
  19. REMERON [Interacting]
     Indication: SCHIZOAFFECTIVE DISORDER
     Route: 048
     Dates: end: 20110728
  20. REMERON [Interacting]
     Route: 048
     Dates: start: 20110808
  21. STILNOX CR [Interacting]
     Route: 048

REACTIONS (3)
  - DRUG INTERACTION [None]
  - ELECTROCARDIOGRAM QT PROLONGED [None]
  - SEDATION [None]
